FAERS Safety Report 13581706 (Version 6)
Quarter: 2021Q1

REPORT INFORMATION
  Report Type: Spontaneous
  Country: CA (occurrence: CA)
  Receive Date: 20170525
  Receipt Date: 20210219
  Transmission Date: 20210419
  Serious: Yes (Other)
  Sender: FDA-Public Use
  Company Number: CA-PFIZER INC-2017222099

PATIENT
  Age: 86 Year
  Sex: Female

DRUGS (17)
  1. GLICLAZIDE [Concomitant]
     Active Substance: GLICLAZIDE
     Dosage: UNK
  2. RAMIPRIL. [Concomitant]
     Active Substance: RAMIPRIL
     Dosage: UNK
  3. AMLODIPINE [Concomitant]
     Active Substance: AMLODIPINE BESYLATE
     Dosage: UNK
  4. SPIRIVA [Concomitant]
     Active Substance: TIOTROPIUM BROMIDE MONOHYDRATE
     Dosage: UNK
  5. JANUVIA [Concomitant]
     Active Substance: SITAGLIPTIN PHOSPHATE
     Dosage: UNK
  6. PANTOPRAZOLE [Concomitant]
     Active Substance: PANTOPRAZOLE
     Dosage: UNK
  7. IRON FERROUS GLUCONATE [Concomitant]
     Active Substance: FERROUS GLUCONATE
     Dosage: UNK
  8. PSYLLIUM [PLANTAGO AFRA] [Concomitant]
     Active Substance: PLANTAGO AFRA SEED
     Dosage: UNK
  9. FUROSEMIDE. [Concomitant]
     Active Substance: FUROSEMIDE
     Dosage: UNK
  10. NOVOLIN NPH [Concomitant]
     Active Substance: INSULIN HUMAN
     Dosage: UNK
  11. INSULIN [Concomitant]
     Active Substance: INSULIN NOS
     Dosage: UNK
  12. RISEDRONATE [Concomitant]
     Active Substance: RISEDRONATE SODIUM
     Dosage: UNK
  13. ADVAIR HFA [Concomitant]
     Active Substance: FLUTICASONE PROPIONATE\SALMETEROL XINAFOATE
     Dosage: UNK
  14. REVATIO [Suspect]
     Active Substance: SILDENAFIL CITRATE
     Indication: PULMONARY ARTERIAL HYPERTENSION
     Dosage: 20 MG, 3X/DAY
     Route: 048
     Dates: start: 20151203
  15. HYDROCHLOROTHIAZIDE. [Concomitant]
     Active Substance: HYDROCHLOROTHIAZIDE
     Dosage: 25 MG, 1X/DAY
  16. PAROXETINE. [Concomitant]
     Active Substance: PAROXETINE
     Dosage: UNK
  17. MACITENTAN [Concomitant]
     Active Substance: MACITENTAN
     Dosage: UNK

REACTIONS (8)
  - Fall [Not Recovered/Not Resolved]
  - Melanocytic naevus [Recovering/Resolving]
  - Skin ulcer [Not Recovered/Not Resolved]
  - Poor peripheral circulation [Not Recovered/Not Resolved]
  - Postoperative wound infection [Recovering/Resolving]
  - Skin ulcer [Not Recovered/Not Resolved]
  - Vein disorder [Not Recovered/Not Resolved]
  - Humerus fracture [Not Recovered/Not Resolved]

NARRATIVE: CASE EVENT DATE: 20170419
